FAERS Safety Report 24383052 (Version 3)
Quarter: 2024Q4

REPORT INFORMATION
  Report Type: Spontaneous
  Country: GB (occurrence: GB)
  Receive Date: 20241001
  Receipt Date: 20241122
  Transmission Date: 20250115
  Serious: No
  Sender: PFIZER
  Company Number: GB-PFIZER INC-202400261587

PATIENT
  Age: 35 Year
  Sex: Male

DRUGS (1)
  1. GENOTROPIN [Suspect]
     Active Substance: SOMATROPIN
     Dosage: UNK

REACTIONS (1)
  - Device breakage [Unknown]
